APPROVED DRUG PRODUCT: ACYCLOVIR SODIUM
Active Ingredient: ACYCLOVIR SODIUM
Strength: EQ 500MG BASE/VIAL
Dosage Form/Route: INJECTABLE;INJECTION
Application: A074913 | Product #001
Applicant: EUROHEALTH INTERNATIONAL SARL
Approved: Oct 15, 1997 | RLD: No | RS: No | Type: DISCN